FAERS Safety Report 6517022-7 (Version None)
Quarter: 2009Q4

REPORT INFORMATION
  Report Type: 
  Country: None (occurrence: None)
  Receive Date: 20091223
  Receipt Date: 20091216
  Transmission Date: 20100525
  Serious: Yes (Death)
  Sender: FDA-Public Use
  Company Number: GXKR2009US13535

PATIENT
  Age: 45 Year
  Sex: Male

DRUGS (6)
  1. CYCLOSPORINE [Suspect]
     Indication: IMMUNOSUPPRESSION
     Route: 065
  2. PREDNISONE TAB [Suspect]
     Indication: IMMUNOSUPPRESSION
     Route: 065
  3. TACROLIMUS [Suspect]
     Indication: IMMUNOSUPPRESSION
     Route: 065
  4. SIROLIMUS [Suspect]
     Indication: IMMUNOSUPPRESSION
     Route: 065
  5. DACLIZUMAB [Suspect]
     Indication: IMMUNOSUPPRESSION
     Route: 065
  6. IMATINIB [Suspect]
     Indication: CHRONIC MYELOID LEUKAEMIA
     Route: 065

REACTIONS (6)
  - CHRONIC HEPATITIS [None]
  - HEPATIC CIRRHOSIS [None]
  - HEPATITIS B [None]
  - HEPATITIS B E ANTIGEN [None]
  - HEPATITIS B SURFACE ANTIGEN POSITIVE [None]
  - SEPSIS [None]
